FAERS Safety Report 11078733 (Version 1)
Quarter: 2015Q2

REPORT INFORMATION
  Report Type: Spontaneous
  Country: US (occurrence: US)
  Receive Date: 20150430
  Receipt Date: 20150430
  Transmission Date: 20150821
  Serious: No
  Sender: FDA-Public Use
  Company Number: US-BIOGENIDEC-2015BI056286

PATIENT
  Age: 61 Year
  Sex: Male

DRUGS (11)
  1. TERAZOSIN HCL [Concomitant]
     Active Substance: TERAZOSIN HYDROCHLORIDE
  2. TYLENOL [Concomitant]
     Active Substance: ACETAMINOPHEN
  3. NEURONTIN [Concomitant]
     Active Substance: GABAPENTIN
  4. SIMVASTATIN. [Concomitant]
     Active Substance: SIMVASTATIN
  5. TECFIDERA [Suspect]
     Active Substance: DIMETHYL FUMARATE
     Indication: MULTIPLE SCLEROSIS
     Route: 048
  6. LOW DOSE ASPIRIN [Concomitant]
     Active Substance: ASPIRIN
  7. OXYBUTYNIN CHLORIDE. [Concomitant]
     Active Substance: OXYBUTYNIN CHLORIDE
  8. BACLOFEN. [Concomitant]
     Active Substance: BACLOFEN
  9. MYRBETRIQ [Concomitant]
     Active Substance: MIRABEGRON
  10. RANTIDINE HCL [Concomitant]
  11. IBUPROFEN. [Concomitant]
     Active Substance: IBUPROFEN

REACTIONS (1)
  - Nasopharyngitis [Unknown]
